FAERS Safety Report 25968620 (Version 1)
Quarter: 2025Q4

REPORT INFORMATION
  Report Type: Spontaneous
  Country: CN (occurrence: CN)
  Receive Date: 20251028
  Receipt Date: 20251028
  Transmission Date: 20260118
  Serious: Yes (Life-Threatening, Hospitalization, Other)
  Sender: QILU ANTIBIOTICS PHARMACEUTICAL
  Company Number: CN-QILU ANTIBIOTICS PHARMACEUTICAL CO. LTD-QLA-000061-2025

PATIENT
  Age: 73 Year
  Sex: Male

DRUGS (1)
  1. CEFTRIAXONE [Suspect]
     Active Substance: CEFTRIAXONE
     Indication: Bacterial infection
     Dosage: UNK
     Route: 065
     Dates: start: 202307, end: 202307

REACTIONS (1)
  - Kounis syndrome [Recovered/Resolved]

NARRATIVE: CASE EVENT DATE: 20230701
